FAERS Safety Report 12893115 (Version 1)
Quarter: 2016Q4

REPORT INFORMATION
  Report Type: Spontaneous
  Country: JP (occurrence: JP)
  Receive Date: 20161028
  Receipt Date: 20161028
  Transmission Date: 20170207
  Serious: Yes (Other)
  Sender: FDA-Public Use
  Company Number: JP-PFIZER INC-2016490853

PATIENT
  Sex: Female

DRUGS (1)
  1. DOCETAXEL 80MG/8ML HOSPIRA [Suspect]
     Active Substance: DOCETAXEL
     Dosage: UNK
     Route: 041

REACTIONS (2)
  - PO2 decreased [Recovered/Resolved]
  - Suffocation feeling [Recovered/Resolved]
